FAERS Safety Report 9133103 (Version 1)
Quarter: 2013Q1

REPORT INFORMATION
  Report Type: Spontaneous
  Country: FR (occurrence: FR)
  Receive Date: 20130128
  Receipt Date: 20130128
  Transmission Date: 20140127
  Serious: Yes (Hospitalization, Other)
  Sender: FDA-Public Use
  Company Number: FR-PFIZER INC-2013029039

PATIENT
  Age: 83 Year
  Sex: Female

DRUGS (7)
  1. LYRICA [Suspect]
     Dosage: 150 MG, 1X/DAY
     Route: 048
     Dates: start: 20120606
  2. HYZAAR [Suspect]
     Dosage: 1 DF, 1X/DAY
     Route: 048
     Dates: end: 20120611
  3. AUGMENTIN [Concomitant]
     Dosage: 1 G/DAY
     Route: 048
     Dates: start: 20120608
  4. VENTOLINE [Concomitant]
     Dosage: UNK
     Route: 048
     Dates: start: 20120608
  5. TEMERIT [Concomitant]
     Dosage: 5 MG, 1X/DAY
     Route: 048
  6. AMAREL [Concomitant]
     Dosage: 12 MG  PER DAY
     Route: 048
  7. STAGID [Concomitant]
     Dosage: 700 MG, 3X/DAY

REACTIONS (5)
  - Hyponatraemia [Recovered/Resolved]
  - Hyperkalaemia [Recovered/Resolved]
  - Confusional state [Recovered/Resolved]
  - Escherichia infection [Unknown]
  - Pyrexia [Unknown]
